FAERS Safety Report 9147662 (Version 3)
Quarter: 2013Q3

REPORT INFORMATION
  Report Type: Spontaneous
  Country: US (occurrence: US)
  Receive Date: 20130307
  Receipt Date: 20130726
  Transmission Date: 20140515
  Serious: Yes (Other)
  Sender: FDA-Public Use
  Company Number: US-PFIZER INC-2013078225

PATIENT
  Age: 57 Year
  Sex: Male
  Weight: 95.24 kg

DRUGS (6)
  1. RAPAMUNE [Suspect]
     Indication: PROPHYLAXIS AGAINST TRANSPLANT REJECTION
     Dosage: 3 MG, 1X/DAY
     Route: 048
     Dates: start: 20100603, end: 20130321
  2. RAPAMUNE [Suspect]
     Indication: IMMUNOSUPPRESSANT DRUG THERAPY
     Dosage: 1 MG, 1X/DAY
     Route: 048
     Dates: start: 20100811, end: 20130321
  3. RAPAMUNE [Suspect]
     Dosage: 2 MG, 1X/DAY
     Route: 048
     Dates: end: 20130304
  4. NOVOLOG [Concomitant]
     Dosage: UNK, 4X/DAY
  5. METOPROLOL [Concomitant]
     Dosage: UNK, 2X/DAY
  6. CELLCEPT [Concomitant]
     Dosage: UNK, 2X/DAY

REACTIONS (3)
  - Renal failure chronic [Not Recovered/Not Resolved]
  - Renal impairment [Not Recovered/Not Resolved]
  - Off label use [Unknown]
